FAERS Safety Report 12510777 (Version 1)
Quarter: 2016Q2

REPORT INFORMATION
  Report Type: Report from Study
  Country: CA (occurrence: CA)
  Receive Date: 20160629
  Receipt Date: 20160629
  Transmission Date: 20160815
  Serious: Yes (Other)
  Sender: FDA-Public Use
  Company Number: CA-ABBVIE-16K-028-1661107-00

PATIENT
  Age: 53 Year
  Sex: Female

DRUGS (1)
  1. HUMIRA [Suspect]
     Active Substance: ADALIMUMAB
     Indication: ANKYLOSING SPONDYLITIS
     Route: 058
     Dates: start: 20131025

REACTIONS (3)
  - Hypophagia [Recovering/Resolving]
  - Suicidal ideation [Recovering/Resolving]
  - Vitamin C deficiency [Recovered/Resolved]

NARRATIVE: CASE EVENT DATE: 201602
